FAERS Safety Report 15524250 (Version 1)
Quarter: 2018Q4

REPORT INFORMATION
  Report Type: Spontaneous
  Country: NL (occurrence: NL)
  Receive Date: 20181019
  Receipt Date: 20181019
  Transmission Date: 20190205
  Serious: Yes (Death, Other)
  Sender: FDA-Public Use
  Company Number: PHHY2018NL110811

PATIENT
  Age: 82 Year
  Sex: Male

DRUGS (1)
  1. AMOXICILLIN AND CLAVULANATE POTASSIUM [Suspect]
     Active Substance: AMOXICILLIN\CLAVULANATE POTASSIUM
     Indication: EMPHYSEMATOUS CHOLECYSTITIS
     Dosage: UNK, UNKNOWN FREQ.
     Route: 065

REACTIONS (3)
  - Emphysematous cholecystitis [Fatal]
  - Sepsis [Fatal]
  - Drug ineffective [Fatal]

NARRATIVE: CASE EVENT DATE: 201708
